FAERS Safety Report 8572620-4 (Version None)
Quarter: 2012Q2

REPORT INFORMATION
  Report Type: 
  Country: None (occurrence: None)
  Receive Date: 20120423
  Receipt Date: 20100526
  Transmission Date: 20120825
  Serious: Yes (Hospitalization, Other)
  Sender: FDA-Public Use
  Company Number: PHEH2010US03272

PATIENT
  Age: 28 Year
  Sex: Female

DRUGS (4)
  1. EXJADE [Suspect]
     Indication: SICKLE CELL ANAEMIA
     Dosage: 2500 MG, QD, ORAL
     Route: 048
     Dates: start: 20090901
  2. ELAVIL [Concomitant]
  3. LORTAB [Concomitant]
  4. FOLIC ACID [Concomitant]

REACTIONS (3)
  - SICKLE CELL ANAEMIA WITH CRISIS [None]
  - PAIN IN EXTREMITY [None]
  - OEDEMA PERIPHERAL [None]
